FAERS Safety Report 10390083 (Version 1)
Quarter: 2014Q1

REPORT INFORMATION
  Report Type: Spontaneous
  Country: US (occurrence: None)
  Receive Date: 20140306
  Receipt Date: 20140306
  Transmission Date: 20141002
  Serious: Yes (Hospitalization)
  Sender: FDA-Public Use
  Company Number: 163-21880-13011910

PATIENT
  Age: 83 Year
  Sex: Female
  Weight: 63.05 kg

DRUGS (23)
  1. REVLIMID (LENALIDOMIDE) (25 MILLIGAM, CAPSULES) [Suspect]
     Indication: PLASMA CELL MYELOMA
     Route: 048
     Dates: start: 20100819, end: 2010
  2. AMIODARONE (AMIODARONE) [Concomitant]
  3. ANASTROZOLED (ANASTROZOLE) [Concomitant]
  4. ARICEPT (DONEPEZIL HYDROCHLORIDE) [Concomitant]
  5. ASA (ACETYLSALICYLIC ACID) [Concomitant]
  6. ATIVAN (LORAZEPAM) [Concomitant]
  7. BUPROPION (BUPROPION) [Concomitant]
  8. CALCIUM + VITAMIN D (LEKOVIT CA) [Concomitant]
  9. COLACE (DOCUSATE SODIUM) [Concomitant]
  10. DEXAMETHASONE (DEXAMETHASONE) [Concomitant]
  11. GABAPENTIN (GABAPENTIN) [Concomitant]
  12. GEMFIBROZIL (GEMFIBROZIL) [Concomitant]
  13. KLOR-CON (POTASSIIUM CHLORIDE) [Concomitant]
  14. LASIX (FUROSEMIDE) [Concomitant]
  15. LEVOTHOROXIN (LEVOTHIROXINE SODIUM) [Concomitant]
  16. MIRAPEX (PRAMIPEXOLE DIHYDROCHLORIDE) [Concomitant]
  17. MVI (MVI) [Concomitant]
  18. NITROFUR MAC (NITROFURANTOIN) [Concomitant]
  19. PREDNISONE (PREDNISONE) [Concomitant]
  20. PREVACID (LANSPOPRAZOLE) [Concomitant]
  21. TRAMADOL (TRAMADOL) [Concomitant]
  22. XARELTO (RIVAROXABAN) [Concomitant]
  23. ZOFRAN (ONDANSETRON HYDROCHLORIDE) [Concomitant]

REACTIONS (2)
  - Femur fracture [None]
  - Fall [None]
